FAERS Safety Report 19516554 (Version 2)
Quarter: 2021Q3

REPORT INFORMATION
  Report Type: Spontaneous
  Country: ES (occurrence: ES)
  Receive Date: 20210710
  Receipt Date: 20210826
  Transmission Date: 20211014
  Serious: Yes (Death, Other)
  Sender: FDA-Public Use
  Company Number: ES-UCBSA-2021031988

PATIENT
  Age: 82 Year
  Sex: Female

DRUGS (4)
  1. LACOSAMIDE. [Suspect]
     Active Substance: LACOSAMIDE
     Indication: STATUS EPILEPTICUS
     Dosage: 400 MILLIGRAM, EV 24 HOURS
     Route: 042
  2. LEVETIRACETAM. [Suspect]
     Active Substance: LEVETIRACETAM
     Indication: STATUS EPILEPTICUS
     Dosage: 3000 MILLIGRAM, EV 24 HRS
  3. PHENYTOIN. [Suspect]
     Active Substance: PHENYTOIN
     Indication: STATUS EPILEPTICUS
     Dosage: 125 MILLIGRAM, 3X/DAY (TID)
  4. METHYLPREDNISOLONE. [Suspect]
     Active Substance: METHYLPREDNISOLONE
     Indication: STATUS EPILEPTICUS
     Dosage: 1000 MILLIGRAM

REACTIONS (4)
  - Product use in unapproved indication [Unknown]
  - Multiple-drug resistance [Unknown]
  - Death [Fatal]
  - Respiratory tract infection [Unknown]
